FAERS Safety Report 14986324 (Version 1)
Quarter: 2018Q2

REPORT INFORMATION
  Report Type: Spontaneous
  Country: US (occurrence: US)
  Receive Date: 20180607
  Receipt Date: 20180607
  Transmission Date: 20180711
  Serious: Yes (Other)
  Sender: FDA-Public Use
  Company Number: US-TEIKOKU PHARMA USA-TPU2018-00379

PATIENT
  Weight: 89.89 kg

DRUGS (2)
  1. EPIDURAL INJECTIONS [Concomitant]
     Indication: SCIATICA
     Dosage: INJECTIONS IN TO SPINE, SOMETIMES ON BOTH SIDES, SOMETIMES DOUBLE INJECTIONS
     Route: 008
  2. LIDOCAINE PATCH [Suspect]
     Active Substance: LIDOCAINE
     Indication: SCIATICA
     Dosage: ONE PATCH APPLIED TO SPINE WHERE THE PAIN WAS, ON FOR 8 TO 12 HOURS
     Route: 061

REACTIONS (5)
  - Body height decreased [Not Recovered/Not Resolved]
  - Prescription drug used without a prescription [Unknown]
  - Spinal operation [Unknown]
  - Drug effect incomplete [Unknown]
  - Pneumonia [Not Recovered/Not Resolved]

NARRATIVE: CASE EVENT DATE: 2018
